FAERS Safety Report 17184656 (Version 1)
Quarter: 2019Q4

REPORT INFORMATION
  Report Type: Spontaneous
  Country: US (occurrence: US)
  Receive Date: 20191220
  Receipt Date: 20191220
  Transmission Date: 20200122
  Serious: Yes (Other)
  Sender: FDA-Public Use
  Company Number: US-009507513-1912USA007373

PATIENT
  Age: 21 Year
  Sex: Female
  Weight: 119.74 kg

DRUGS (1)
  1. NEXPLANON [Suspect]
     Active Substance: ETONOGESTREL
     Dosage: 1 DOSAGE FORM
     Route: 059
     Dates: start: 2018

REACTIONS (3)
  - Complication associated with device [Recovered/Resolved]
  - Device dislocation [Unknown]
  - No adverse event [Unknown]
